FAERS Safety Report 17999389 (Version 1)
Quarter: 2020Q3

REPORT INFORMATION
  Report Type: Spontaneous
  Country: ES (occurrence: ES)
  Receive Date: 20200709
  Receipt Date: 20200709
  Transmission Date: 20201103
  Serious: Yes (Other)
  Sender: FDA-Public Use
  Company Number: NVSC2020ES186901

PATIENT
  Age: 45 Year
  Sex: Female
  Weight: 65 kg

DRUGS (3)
  1. KALETRA [Suspect]
     Active Substance: LOPINAVIR\RITONAVIR
     Indication: COVID-19
     Dosage: 2 DECADE, QD
     Route: 048
     Dates: start: 20200305, end: 20200319
  2. INTERFERON BETA?1B [Suspect]
     Active Substance: INTERFERON BETA-1B
     Indication: COVID-19
     Dosage: 30 MG, QD
     Route: 058
     Dates: start: 20200306, end: 20200319
  3. PIPERACILLIN SODIUM,TAZOBACTAM SODIUM [Suspect]
     Active Substance: PIPERACILLIN SODIUM\TAZOBACTAM SODIUM
     Indication: COVID-19
     Dosage: 250 G, QD
     Route: 042
     Dates: start: 20200310, end: 20200316

REACTIONS (2)
  - Mixed liver injury [Recovering/Resolving]
  - Diarrhoea [Recovered/Resolved]

NARRATIVE: CASE EVENT DATE: 202003
